FAERS Safety Report 18263315 (Version 1)
Quarter: 2020Q3

REPORT INFORMATION
  Report Type: Spontaneous
  Country: CN (occurrence: CN)
  Receive Date: 20200914
  Receipt Date: 20200914
  Transmission Date: 20201103
  Serious: Yes (Other)
  Sender: FDA-Public Use
  Company Number: CN-SUN PHARMACEUTICAL INDUSTRIES LTD-2020R1-260302

PATIENT
  Age: 33 Year
  Sex: Female

DRUGS (3)
  1. PEMETREXED. [Suspect]
     Active Substance: PEMETREXED
     Indication: LUNG ADENOCARCINOMA STAGE IV
     Dosage: EVERY 3 WEEKS
     Route: 065
     Dates: start: 201709, end: 201806
  2. CAMRELIZUMAB [Suspect]
     Active Substance: CAMRELIZUMAB
     Indication: LUNG ADENOCARCINOMA STAGE IV
     Dosage: EVERY 3 WEEKS
     Route: 065
     Dates: start: 201709, end: 201806
  3. CARBOPLATIN. [Suspect]
     Active Substance: CARBOPLATIN
     Indication: LUNG ADENOCARCINOMA STAGE IV
     Dosage: EVERY 3 WEEKS
     Route: 065
     Dates: start: 201709, end: 201806

REACTIONS (1)
  - Hepatotoxicity [Unknown]
